FAERS Safety Report 21088489 (Version 1)
Quarter: 2022Q3

REPORT INFORMATION
  Report Type: Report from Study
  Country: US (occurrence: US)
  Receive Date: 20220715
  Receipt Date: 20220715
  Transmission Date: 20221027
  Serious: Yes (Other)
  Sender: FDA-Public Use
  Company Number: US-SHIRE-US201931783

PATIENT
  Sex: Female

DRUGS (1)
  1. HUMAN IMMUNOGLOBULIN G [Suspect]
     Active Substance: HUMAN IMMUNOGLOBULIN G
     Indication: Primary immunodeficiency syndrome
     Dosage: 30 GRAM
     Route: 042

REACTIONS (7)
  - Sinusitis bacterial [Unknown]
  - Immunoglobulins decreased [Unknown]
  - Muscle spasms [Unknown]
  - Nausea [Unknown]
  - Poor venous access [Unknown]
  - Product availability issue [Unknown]
  - Inappropriate schedule of product administration [Unknown]
